FAERS Safety Report 4776761-9 (Version None)
Quarter: 2005Q3

REPORT INFORMATION
  Report Type: 
  Country: None (occurrence: None)
  Receive Date: 20050921
  Receipt Date: 20050907
  Transmission Date: 20060218
  Serious: Yes (Other)
  Sender: FDA-Public Use
  Company Number: USA0508106270

PATIENT
  Age: 9 Year
  Sex: Male
  Weight: 36 kg

DRUGS (1)
  1. STRATTERA [Suspect]
     Indication: ATTENTION DEFICIT/HYPERACTIVITY DISORDER
     Dosage: 50 MG/ 1 DAY
     Dates: start: 20041129

REACTIONS (4)
  - ERYTHEMA MULTIFORME [None]
  - PRURITUS [None]
  - RASH GENERALISED [None]
  - VIRAL UPPER RESPIRATORY TRACT INFECTION [None]
